FAERS Safety Report 16442842 (Version 2)
Quarter: 2020Q4

REPORT INFORMATION
  Report Type: Not Available
  Country: None (occurrence: None)
  Receive Date: 20190617
  Receipt Date: 20201106
  Transmission Date: 20210113
  Serious: Yes (Disabling, Other)
  Sender: FDA-Public Use
  Company Number: GB-AKRON, INC.-2069277

PATIENT
  Age: 76 Year
  Sex: Male

DRUGS (1)
  1. GENTAMICIN SULFATE OPHTHALMIC SOLUTION [Suspect]
     Active Substance: GENTAMICIN SULFATE

REACTIONS (1)
  - Deafness transitory [None]
